FAERS Safety Report 11243634 (Version 1)
Quarter: 2015Q3

REPORT INFORMATION
  Report Type: Spontaneous
  Country: GB (occurrence: GB)
  Receive Date: 20150707
  Receipt Date: 20150707
  Transmission Date: 20151125
  Serious: Yes (Other)
  Sender: FDA-Public Use
  Company Number: GB-TEVA-575377ACC

PATIENT
  Age: 53 Year
  Sex: Female

DRUGS (3)
  1. DICLOFENAC [Suspect]
     Active Substance: DICLOFENAC
     Dosage: 3 DOSAGE FORMS DAILY;
     Route: 065
     Dates: start: 20150521
  2. DIAZEPAM. [Concomitant]
     Active Substance: DIAZEPAM
     Dosage: 3 DOSAGE FORMS DAILY;
     Dates: start: 20150518, end: 20150525
  3. NAPROXEN. [Concomitant]
     Active Substance: NAPROXEN
     Dosage: 2 DOSAGE FORMS DAILY;
     Dates: start: 20150518, end: 20150601

REACTIONS (1)
  - Vaginal haemorrhage [Recovered/Resolved]

NARRATIVE: CASE EVENT DATE: 20150604
